FAERS Safety Report 5133708-3 (Version None)
Quarter: 2006Q4

REPORT INFORMATION
  Report Type: 
  Country: None (occurrence: None)
  Receive Date: 20061024
  Receipt Date: 20060727
  Transmission Date: 20070319
  Serious: Yes (Hospitalization)
  Sender: FDA-Public Use
  Company Number: PHEH2006US09700

PATIENT
  Age: 80 Year
  Sex: Female

DRUGS (16)
  1. ZELNORM [Suspect]
     Indication: CONSTIPATION
     Dosage: 6 MG, BID
     Route: 048
     Dates: end: 20060720
  2. AMBIEN [Concomitant]
     Dosage: 10 MG, PRN
     Dates: start: 20060717
  3. ULTRAM [Concomitant]
     Dosage: 50 MG, PRN
     Dates: start: 20060717
  4. TYLENOL [Concomitant]
     Dosage: UNK, PRN
  5. TAMOXIFEN CITRATE [Concomitant]
  6. NITRO-DUR [Concomitant]
  7. INSULIN [Concomitant]
  8. DULCOLAX [Concomitant]
  9. TENORMIN [Concomitant]
  10. NORVASC [Concomitant]
  11. LASIX [Concomitant]
  12. NITRODYL [Concomitant]
  13. DARVOCET [Concomitant]
  14. MILK OF MAGNESIA TAB [Concomitant]
     Dosage: UNK, PRN
  15. GLUCOTROL [Concomitant]
  16. BETAMETHASONE VALERATE W/CLOTRIMAZOLE [Concomitant]
     Route: 061

REACTIONS (14)
  - ASPIRATION PLEURAL CAVITY [None]
  - BLOOD ALKALINE PHOSPHATASE INCREASED [None]
  - BLOOD GLUCOSE INCREASED [None]
  - COLITIS ISCHAEMIC [None]
  - DYSPNOEA [None]
  - HAEMOGLOBIN DECREASED [None]
  - HYPOTENSION [None]
  - LETHARGY [None]
  - MALIGNANT PLEURAL EFFUSION [None]
  - MUCOSAL DISCOLOURATION [None]
  - OCCULT BLOOD POSITIVE [None]
  - PALLOR [None]
  - RALES [None]
  - RECTAL HAEMORRHAGE [None]
